FAERS Safety Report 24855520 (Version 2)
Quarter: 2025Q3

REPORT INFORMATION
  Report Type: Report from Study
  Country: JP (occurrence: JP)
  Receive Date: 20250117
  Receipt Date: 20250907
  Transmission Date: 20251021
  Serious: Yes (Other)
  Sender: UCB
  Company Number: JP-UCBJ-CD202412420UCBPHAPROD

PATIENT
  Age: 15 Year
  Sex: Male

DRUGS (2)
  1. FENFLURAMINE HYDROCHLORIDE [Suspect]
     Active Substance: FENFLURAMINE HYDROCHLORIDE
     Indication: Lennox-Gastaut syndrome
     Dosage: 2 MILLILITER, ONCE DAILY (QD)
     Route: 048
     Dates: start: 20241004
  2. ETHYL LOFLAZEPATE [Suspect]
     Active Substance: ETHYL LOFLAZEPATE
     Indication: Lennox-Gastaut syndrome
     Route: 048

REACTIONS (6)
  - Petit mal epilepsy [Unknown]
  - Weight increased [Unknown]
  - Increased appetite [Unknown]
  - Somnolence [Unknown]
  - Product use issue [Unknown]
  - Product packaging quantity issue [Unknown]
